FAERS Safety Report 16173216 (Version 2)
Quarter: 2019Q2

REPORT INFORMATION
  Report Type: Spontaneous
  Country: US (occurrence: US)
  Receive Date: 20190409
  Receipt Date: 20190422
  Transmission Date: 20190711
  Serious: No
  Sender: FDA-Public Use
  Company Number: US-GLAXOSMITHKLINE-US2019060920

PATIENT
  Age: 75 Year
  Sex: Male

DRUGS (2)
  1. BREO ELLIPTA [Suspect]
     Active Substance: FLUTICASONE FUROATE\VILANTEROL TRIFENATATE
     Indication: ASTHMA
     Dosage: UNK
     Route: 055
     Dates: start: 201901
  2. BREO ELLIPTA [Suspect]
     Active Substance: FLUTICASONE FUROATE\VILANTEROL TRIFENATATE
     Indication: CHRONIC OBSTRUCTIVE PULMONARY DISEASE

REACTIONS (7)
  - Oropharyngeal pain [Unknown]
  - Condition aggravated [Recovering/Resolving]
  - Ageusia [Unknown]
  - Cough [Unknown]
  - Drug ineffective [Unknown]
  - Secretion discharge [Unknown]
  - Bronchitis [Unknown]

NARRATIVE: CASE EVENT DATE: 201901
